FAERS Safety Report 8166887-4 (Version None)
Quarter: 2012Q1

REPORT INFORMATION
  Report Type: 
  Country: None (occurrence: None)
  Receive Date: 20120103
  Receipt Date: 20120103
  Transmission Date: 20120608
  Serious: No
  Sender: FDA-Public Use
  Company Number: AE-2011-002575

PATIENT
  Age: 54 Year
  Sex: Female
  Weight: 73.4827 kg

DRUGS (4)
  1. INCIVEK [Suspect]
     Dosage: 2250 MG (750 MG,3 IN 1 D),ORAL
     Route: 048
     Dates: start: 20110902
  2. RIBAVIRIN [Concomitant]
  3. PROZAC [Concomitant]
  4. PEGINTERFERON (PEGINTERFERON ALFA-2A) [Concomitant]

REACTIONS (6)
  - BILIARY DYSKINESIA [None]
  - ABDOMINAL PAIN UPPER [None]
  - VOMITING [None]
  - HYPERHIDROSIS [None]
  - CHILLS [None]
  - NAUSEA [None]
